FAERS Safety Report 9094626 (Version 2)
Quarter: 2013Q1

REPORT INFORMATION
  Report Type: Spontaneous
  Country: US (occurrence: US)
  Receive Date: 20130219
  Receipt Date: 20130311
  Transmission Date: 20140127
  Serious: Yes (Other)
  Sender: FDA-Public Use
  Company Number: US-PFIZER INC-2013061637

PATIENT
  Age: 77 Year
  Sex: Female
  Weight: 44.9 kg

DRUGS (7)
  1. LIPITOR [Suspect]
     Indication: BLOOD CHOLESTEROL INCREASED
     Dosage: 20 MG, DAILY
     Route: 048
  2. NEURONTIN [Suspect]
     Indication: HERPES ZOSTER
     Dosage: 600 MG, 3X/DAY
     Route: 048
     Dates: end: 2012
  3. NEURONTIN [Suspect]
     Indication: POST HERPETIC NEURALGIA
  4. LISINOPRIL [Concomitant]
     Indication: HYPERTENSION
     Dosage: UNK
  5. ATENOLOL [Concomitant]
     Dosage: UNK
  6. POTASSIUM [Concomitant]
     Dosage: UNK
  7. SOTALOL [Concomitant]
     Dosage: UNK

REACTIONS (6)
  - Chronic obstructive pulmonary disease [Not Recovered/Not Resolved]
  - Arterial occlusive disease [Unknown]
  - Thermal burn [Unknown]
  - Thrombosis [Unknown]
  - Cardiac disorder [Unknown]
  - Weight decreased [Unknown]
